FAERS Safety Report 21945963 (Version 2)
Quarter: 2023Q1

REPORT INFORMATION
  Report Type: Spontaneous
  Country: US (occurrence: US)
  Receive Date: 20230202
  Receipt Date: 20230216
  Transmission Date: 20230417
  Serious: No
  Sender: FDA-Public Use
  Company Number: US-SA-SAC20230131001134

PATIENT
  Age: 59 Year
  Sex: Female

DRUGS (1)
  1. DUPIXENT [Suspect]
     Active Substance: DUPILUMAB
     Dosage: 300 MG, OTHER
     Route: 058
     Dates: start: 20221202

REACTIONS (10)
  - Injection site pain [Unknown]
  - Application site exfoliation [Unknown]
  - Injection site rash [Unknown]
  - Injection site dryness [Unknown]
  - Injection site discolouration [Unknown]
  - Injection site erythema [Unknown]
  - COVID-19 [Unknown]
  - Dry skin [Unknown]
  - Skin exfoliation [Unknown]
  - Incorrect dose administered [Unknown]
